FAERS Safety Report 16997310 (Version 1)
Quarter: 2019Q4

REPORT INFORMATION
  Report Type: Spontaneous
  Country: US (occurrence: US)
  Receive Date: 20190924
  Receipt Date: 20190924
  Transmission Date: 20200122
  Serious: No
  Sender: FDA-Public Use
  Company Number: None

PATIENT

DRUGS (2)
  1. FOLIC ACID. [Suspect]
     Active Substance: FOLIC ACID
     Route: 048
  2. METHOTREXATE TABLETS [Suspect]
     Active Substance: METHOTREXATE
     Route: 048

REACTIONS (4)
  - Product appearance confusion [None]
  - Platelet count decreased [None]
  - Product label confusion [None]
  - Inappropriate schedule of product administration [None]
